FAERS Safety Report 8102059-7 (Version None)
Quarter: 2012Q1

REPORT INFORMATION
  Report Type: 
  Country: None (occurrence: None)
  Receive Date: 20120131
  Receipt Date: 20120126
  Transmission Date: 20120608
  Serious: Yes (Hospitalization)
  Sender: FDA-Public Use
  Company Number: FR-B.I. PHARMACEUTICALS,INC./RIDGEFIELD-2011-FF-01023FF

PATIENT
  Sex: Female

DRUGS (9)
  1. ASPIRIN [Concomitant]
  2. MICARDIS [Suspect]
     Route: 048
     Dates: start: 20110810, end: 20110920
  3. ALLOPURINOL [Suspect]
     Route: 048
     Dates: start: 20110726, end: 20110920
  4. AMLODIPINE BESYLATE [Concomitant]
  5. DIAMICRON [Concomitant]
  6. ATARAX [Concomitant]
  7. NEBIVOLOL HCL [Suspect]
     Route: 048
     Dates: start: 20110810, end: 20110920
  8. IMOVANE [Suspect]
     Route: 048
     Dates: start: 20110716, end: 20110929
  9. EUPRESSYL [Suspect]
     Route: 048
     Dates: start: 20110810, end: 20110920

REACTIONS (1)
  - DRUG RASH WITH EOSINOPHILIA AND SYSTEMIC SYMPTOMS [None]
